FAERS Safety Report 12295018 (Version 1)
Quarter: 2016Q2

REPORT INFORMATION
  Report Type: Spontaneous
  Country: US (occurrence: None)
  Receive Date: 20160421
  Receipt Date: 20160421
  Transmission Date: 20160815
  Serious: Yes (Other)
  Sender: FDA-Public Use
  Company Number: None

PATIENT
  Age: 64 Year
  Sex: Female
  Weight: 106.14 kg

DRUGS (2)
  1. BIAXIN [Suspect]
     Active Substance: CLARITHROMYCIN
     Indication: SINUSITIS
     Route: 048
     Dates: start: 20160322, end: 20160322
  2. BIAXIN [Suspect]
     Active Substance: CLARITHROMYCIN
     Indication: OTITIS MEDIA
     Route: 048
     Dates: start: 20160322, end: 20160322

REACTIONS (2)
  - Vomiting [None]
  - Product label confusion [None]

NARRATIVE: CASE EVENT DATE: 20160322
